FAERS Safety Report 5132635-5 (Version None)
Quarter: 2006Q4

REPORT INFORMATION
  Report Type: 
  Country: None (occurrence: None)
  Receive Date: 20061023
  Receipt Date: 20061018
  Transmission Date: 20070319
  Serious: Yes (Other)
  Sender: FDA-Public Use
  Company Number: GB-GLAXOSMITHKLINE-B0442575A

PATIENT
  Sex: Female

DRUGS (2)
  1. NIQUITIN CQ LOZENGE [Suspect]
     Indication: SMOKING CESSATION THERAPY
     Route: 002
     Dates: start: 20051001
  2. NIQUITIN CQ LOZENGE [Suspect]
     Route: 002
     Dates: start: 20051001

REACTIONS (7)
  - DEPENDENCE [None]
  - DIARRHOEA [None]
  - FEELING HOT AND COLD [None]
  - FEELING JITTERY [None]
  - INTENTIONAL DRUG MISUSE [None]
  - IRRITABILITY [None]
  - NIGHTMARE [None]
